FAERS Safety Report 22715455 (Version 2)
Quarter: 2023Q4

REPORT INFORMATION
  Report Type: Spontaneous
  Country: US (occurrence: US)
  Receive Date: 20230718
  Receipt Date: 20231229
  Transmission Date: 20240109
  Serious: No
  Sender: FDA-Public Use
  Company Number: US-SUN PHARMACEUTICAL INDUSTRIES LTD-2023R1-373214

PATIENT
  Age: 60 Year
  Sex: Female

DRUGS (2)
  1. HALOG [Suspect]
     Active Substance: HALCINONIDE
     Indication: Dermatitis atopic
     Dosage: UNK
     Route: 065
  2. HALOG [Suspect]
     Active Substance: HALCINONIDE
     Indication: Product used for unknown indication
     Dosage: UNK
     Route: 065

REACTIONS (3)
  - Therapy interrupted [Unknown]
  - Drug intolerance [Unknown]
  - Product use issue [Unknown]
